FAERS Safety Report 8409130-0 (Version None)
Quarter: 2012Q2

REPORT INFORMATION
  Report Type: 
  Country: None (occurrence: None)
  Receive Date: 20120604
  Receipt Date: 20120521
  Transmission Date: 20120825
  Serious: Yes (Hospitalization)
  Sender: FDA-Public Use
  Company Number: US-SANOFI-AVENTIS-2012SA036906

PATIENT
  Age: 89 Year
  Sex: Female

DRUGS (15)
  1. FERROUS SULFATE TAB [Concomitant]
  2. MAGNESIUM OXIDE [Concomitant]
  3. TOLTERODINE TARTRATE [Concomitant]
  4. OMEPRAZOLE [Suspect]
  5. CELECOXIB [Concomitant]
  6. LEVOTHYROXINE SODIUM [Concomitant]
     Indication: HYPOTHYROIDISM
  7. ERGOCALCIFEROL [Concomitant]
  8. PANTOPRAZOLE SODIUM [Concomitant]
  9. HUMIRA [Suspect]
     Indication: RHEUMATOID ARTHRITIS
     Route: 058
     Dates: start: 20111201
  10. HYDROXYCHLOROQUINE SULFATE [Suspect]
     Indication: RHEUMATOID ARTHRITIS
     Route: 048
  11. AMLODIPINE [Concomitant]
  12. PREDNISONE [Concomitant]
     Indication: RHEUMATOID ARTHRITIS
  13. CALCIUM/COLECALCIFEROL [Concomitant]
  14. SULFASALAZINE [Concomitant]
     Indication: RHEUMATOID ARTHRITIS
  15. VITAMIN B-12 [Concomitant]

REACTIONS (3)
  - CHRONIC OBSTRUCTIVE PULMONARY DISEASE [None]
  - ASTHMA [None]
  - DYSPNOEA [None]
